FAERS Safety Report 6385125-6 (Version None)
Quarter: 2009Q4

REPORT INFORMATION
  Report Type: 
  Country: None (occurrence: None)
  Receive Date: 20091002
  Receipt Date: 20090922
  Transmission Date: 20100525
  Serious: Yes (Hospitalization, Other)
  Sender: FDA-Public Use
  Company Number: BR-ABBOTT-09P-020-0592792-00

PATIENT
  Sex: Female
  Weight: 54.5 kg

DRUGS (5)
  1. HUMIRA [Suspect]
     Indication: CROHN'S DISEASE
     Route: 058
     Dates: start: 20090415
  2. HUMIRA [Suspect]
     Route: 058
     Dates: start: 20090712
  3. MESALAZINE [Concomitant]
     Indication: CROHN'S DISEASE
     Route: 048
     Dates: start: 20070905
  4. PREDNISONE [Concomitant]
     Indication: CROHN'S DISEASE
     Route: 048
     Dates: start: 20070905
  5. DIMETICONE [Concomitant]
     Indication: FLATULENCE
     Dates: start: 20090801

REACTIONS (10)
  - ABDOMINAL PAIN [None]
  - BACK PAIN [None]
  - BLOOD POTASSIUM DECREASED [None]
  - CROHN'S DISEASE [None]
  - DYSPEPSIA [None]
  - GASTRITIS [None]
  - PNEUMONIA [None]
  - RETCHING [None]
  - VOMITING [None]
  - WEIGHT DECREASED [None]
